FAERS Safety Report 7785950-0 (Version None)
Quarter: 2011Q3

REPORT INFORMATION
  Report Type: 
  Country: None (occurrence: None)
  Receive Date: 20110929
  Receipt Date: 20110926
  Transmission Date: 20111222
  Serious: Yes (Death)
  Sender: FDA-Public Use
  Company Number: FR-MILLENNIUM PHARMACEUTICALS, INC.-2011-04570

PATIENT

DRUGS (4)
  1. ALKERAN [Concomitant]
     Indication: MONOCLONAL GAMMOPATHY
     Dosage: UNK
     Route: 065
     Dates: start: 20110701
  2. PREDNISONE [Concomitant]
     Indication: MONOCLONAL GAMMOPATHY
     Dosage: UNK
     Route: 065
     Dates: start: 20110701
  3. VELCADE [Suspect]
     Indication: MONOCLONAL GAMMOPATHY
     Dosage: 1 MG/M2, CYCLIC
     Dates: start: 20110701
  4. DECADRON [Concomitant]
     Indication: MONOCLONAL GAMMOPATHY
     Dosage: 20 MG, UNK
     Route: 065

REACTIONS (1)
  - DEATH [None]
